FAERS Safety Report 11707011 (Version 1)
Quarter: 2015Q4

REPORT INFORMATION
  Report Type: Spontaneous
  Country: US (occurrence: US)
  Receive Date: 20151106
  Receipt Date: 20151106
  Transmission Date: 20160304
  Serious: No
  Sender: FDA-Public Use
  Company Number: US-ACTELION PHARMACEUTICALS US, INC.-A-US2015-126298

PATIENT
  Age: 83 Year
  Sex: Female

DRUGS (3)
  1. VELETRI [Suspect]
     Active Substance: EPOPROSTENOL
     Indication: PULMONARY ARTERIAL HYPERTENSION
     Dosage: 10 NG/KG, PER MIN
     Route: 042
     Dates: start: 20150922
  2. VELETRI [Suspect]
     Active Substance: EPOPROSTENOL
     Dosage: 13 UNK, UNK
     Route: 042
     Dates: start: 20150922
  3. WARFARIN [Concomitant]
     Active Substance: WARFARIN

REACTIONS (3)
  - Catheter site erythema [Unknown]
  - Catheter site vesicles [Unknown]
  - Mobility decreased [Unknown]
